FAERS Safety Report 14257816 (Version 5)
Quarter: 2018Q2

REPORT INFORMATION
  Report Type: Spontaneous
  Country: NL (occurrence: NL)
  Receive Date: 20171207
  Receipt Date: 20180622
  Transmission Date: 20180711
  Serious: Yes (Other)
  Sender: FDA-Public Use
  Company Number: NL-ACCORD-061729

PATIENT
  Age: 58 Year
  Sex: Female

DRUGS (8)
  1. CISPLATIN. [Suspect]
     Active Substance: CISPLATIN
     Indication: METASTASES TO LIVER
     Dates: start: 2011
  2. DOXORUBICIN [Suspect]
     Active Substance: DOXORUBICIN
     Indication: ADENOCARCINOMA GASTRIC
     Dosage: RECEIVED 6 CYCLES ON DAY 1
  3. CARBOPLATIN. [Suspect]
     Active Substance: CARBOPLATIN
     Indication: METASTASES TO LIVER
     Dosage: AUC 5, ALSO RECEIVED 2 CYCLES IN 2008, AUC 4 AND 3 CYCLES IN 2006, AUC 6
     Dates: start: 2003
  4. GEMCITABINE/GEMCITABINE HYDROCHLORIDE [Suspect]
     Active Substance: GEMCITABINE\GEMCITABINE HYDROCHLORIDE
     Indication: ADENOCARCINOMA GASTRIC
     Dosage: RECEIVED IN ACCORDANCE WITH AGO-OVAR STUDY
  5. LETROZOLE. [Concomitant]
     Active Substance: LETROZOLE
     Indication: OVARIAN CANCER
     Dates: start: 201408
  6. ETOPOSIDE. [Suspect]
     Active Substance: ETOPOSIDE
     Indication: ADENOCARCINOMA GASTRIC
     Dosage: 50MG DAILY FOR 4MONTHS
     Route: 048
     Dates: start: 2011
  7. CYCLOPHOSPHAMIDE/CYCLOPHOSPHAMIDE MONOHYDRATE [Suspect]
     Active Substance: CYCLOPHOSPHAMIDE
     Indication: OVARIAN CANCER METASTATIC
     Route: 048
     Dates: start: 201507
  8. PACLITAXEL/PACLITAXEL LIPOSOME [Suspect]
     Active Substance: PACLITAXEL
     Indication: METASTASES TO LIVER

REACTIONS (5)
  - Off label use [Unknown]
  - Diabetic retinopathy [Unknown]
  - Fatigue [Unknown]
  - Diabetic neuropathy [Unknown]
  - Condition aggravated [Unknown]
